FAERS Safety Report 6049974-6 (Version None)
Quarter: 2009Q1

REPORT INFORMATION
  Report Type: 
  Country: None (occurrence: None)
  Receive Date: 20090121
  Receipt Date: 20090106
  Transmission Date: 20090719
  Serious: Yes (Death)
  Sender: FDA-Public Use
  Company Number: PAR_02535_2009

PATIENT
  Age: 48 Year
  Sex: Male

DRUGS (6)
  1. ALLOPURINOL [Suspect]
     Indication: DRUG USE FOR UNKNOWN INDICATION
     Dosage: DF, ORAL
     Route: 048
  2. LITHIUM [Suspect]
     Indication: DRUG USE FOR UNKNOWN INDICATION
     Dosage: DF, ORAL
     Route: 048
  3. METFORMIN HCL [Suspect]
     Indication: DRUG USE FOR UNKNOWN INDICATION
     Dosage: DF, ORAL
     Route: 048
  4. LISINOPRIL [Suspect]
     Indication: DRUG USE FOR UNKNOWN INDICATION
     Dosage: DF, ORAL
     Route: 048
  5. SIMVASTATIN [Suspect]
     Indication: DRUG USE FOR UNKNOWN INDICATION
     Dosage: DF, ORAL
     Route: 048
  6. EZETIMIBE [Suspect]
     Indication: DRUG USE FOR UNKNOWN INDICATION
     Dosage: DF, ORAL
     Route: 048

REACTIONS (1)
  - DEATH [None]
